FAERS Safety Report 7561810-5 (Version None)
Quarter: 2011Q2

REPORT INFORMATION
  Report Type: 
  Country: None (occurrence: None)
  Receive Date: 20110621
  Receipt Date: 20110616
  Transmission Date: 20111010
  Serious: Yes (Hospitalization, Other)
  Sender: FDA-Public Use
  Company Number: GB-PFIZER INC-2011037226

PATIENT
  Sex: Male
  Weight: 2.4 kg

DRUGS (3)
  1. VENLAFAXINE HCL [Suspect]
     Route: 064
  2. MIRTAZAPINE [Suspect]
     Dosage: UNK
     Route: 064
  3. OLANZAPINE [Suspect]
     Route: 064

REACTIONS (8)
  - FEEDING DISORDER NEONATAL [None]
  - DRUG WITHDRAWAL SYNDROME NEONATAL [None]
  - GASTROOESOPHAGEAL REFLUX DISEASE [None]
  - COUGH [None]
  - VOMITING [None]
  - RESTLESSNESS [None]
  - SEPSIS NEONATAL [None]
  - DRUG EXPOSURE DURING PREGNANCY [None]
